FAERS Safety Report 8222808-7 (Version None)
Quarter: 2012Q1

REPORT INFORMATION
  Report Type: 
  Country: None (occurrence: None)
  Receive Date: 20120320
  Receipt Date: 20120309
  Transmission Date: 20120608
  Serious: Yes (Other)
  Sender: FDA-Public Use
  Company Number: US-JNJFOC-20120306288

PATIENT
  Sex: Female
  Weight: 66.68 kg

DRUGS (10)
  1. PROVENTIL [Concomitant]
     Indication: NASOPHARYNGITIS
     Route: 065
  2. REMICADE [Suspect]
     Dosage: EVERY 8 WEEKS
     Route: 042
     Dates: start: 20020101
  3. HYDROCHLOROTHIAZIDE [Concomitant]
     Indication: FLUID RETENTION
     Route: 065
  4. ATROVENT [Concomitant]
     Indication: CHRONIC OBSTRUCTIVE PULMONARY DISEASE
     Dosage: 2 PUFFS BID
     Route: 055
  5. REMICADE [Suspect]
     Indication: RHEUMATOID ARTHRITIS
     Route: 042
  6. PEPCID [Concomitant]
     Route: 065
  7. FLOVENT [Concomitant]
     Indication: CHRONIC OBSTRUCTIVE PULMONARY DISEASE
     Dosage: 2 PUFFS BID
     Route: 055
  8. UNKNOWN MEDICATION [Concomitant]
     Indication: MULTIPLE ALLERGIES
     Route: 065
  9. METHOTREXATE [Concomitant]
     Route: 065
  10. PEPCID [Concomitant]
     Indication: GASTROOESOPHAGEAL REFLUX DISEASE
     Route: 065

REACTIONS (15)
  - MEMORY IMPAIRMENT [None]
  - DIZZINESS [None]
  - VIRAL INFECTION [None]
  - CHILLS [None]
  - BODY HEIGHT DECREASED [None]
  - PRECANCEROUS CELLS PRESENT [None]
  - NASOPHARYNGITIS [None]
  - TENDONITIS [None]
  - CALCINOSIS [None]
  - FATIGUE [None]
  - BREAST MASS [None]
  - INFUSION RELATED REACTION [None]
  - URINARY TRACT INFECTION [None]
  - BURSITIS [None]
  - ROTATOR CUFF SYNDROME [None]
